FAERS Safety Report 16786337 (Version 1)
Quarter: 2019Q3

REPORT INFORMATION
  Report Type: Spontaneous
  Country: US (occurrence: US)
  Receive Date: 20190718
  Receipt Date: 20190718
  Transmission Date: 20191005
  Serious: No
  Sender: FDA-Public Use
  Company Number: None

PATIENT
  Age: 80 Year
  Sex: Male

DRUGS (2)
  1. ABIRATERONE. [Concomitant]
     Active Substance: ABIRATERONE ACETATE
  2. PREDNISONE 5MG TAB [Suspect]
     Active Substance: PREDNISONE
     Dates: start: 201905

REACTIONS (3)
  - Weight increased [None]
  - Gait disturbance [None]
  - Vertigo [None]

NARRATIVE: CASE EVENT DATE: 20190718
